FAERS Safety Report 10022518 (Version 2)
Quarter: 2014Q1

REPORT INFORMATION
  Report Type: Spontaneous
  Country: CH (occurrence: CH)
  Receive Date: 20140319
  Receipt Date: 20140319
  Transmission Date: 20141002
  Serious: Yes (Disabling, Other)
  Sender: FDA-Public Use
  Company Number: CH-PFIZER INC-2014056176

PATIENT
  Age: 42 Year
  Sex: Female
  Weight: 78 kg

DRUGS (2)
  1. EFEXOR ER [Suspect]
     Indication: DEPRESSION
     Dosage: 150 MG, 3X/DAY
     Route: 048
     Dates: start: 200610, end: 200810
  2. SURMONTIL [Suspect]
     Indication: SLEEP DISORDER
     Dosage: 25 MG, 1X/DAY
     Route: 048
     Dates: start: 200705, end: 200705

REACTIONS (5)
  - Muscle twitching [Recovering/Resolving]
  - Extrapyramidal disorder [Unknown]
  - Muscle tightness [Recovering/Resolving]
  - Dyskinesia [Unknown]
  - Movement disorder [Unknown]
